FAERS Safety Report 9503604 (Version 2)
Quarter: 2014Q1

REPORT INFORMATION
  Report Type: Report from Study
  Country: US (occurrence: US)
  Receive Date: 20130906
  Receipt Date: 20140212
  Transmission Date: 20141002
  Serious: Yes (Hospitalization, Other)
  Sender: FDA-Public Use
  Company Number: US-PFIZER INC-2013250880

PATIENT
  Age: 63 Year
  Sex: Male

DRUGS (7)
  1. FLUOROURACIL [Suspect]
     Indication: COLON CANCER
     Dosage: 5950 MG, 1 IN 2 WEEKS
     Route: 042
     Dates: start: 20130626
  2. OXALIPLATIN [Suspect]
     Indication: COLON CANCER
     Dosage: 85 MG/M2, 1 IN 2 WEEKS
     Route: 042
     Dates: start: 20130626, end: 20130730
  3. OXALIPLATIN [Suspect]
     Dosage: 85 MG/M2, 1 IN 2 WEEKS
     Route: 042
     Dates: start: 20130806
  4. IRINOTECAN HCL [Suspect]
     Indication: COLON CANCER
     Dosage: 165 MG/M2, 1IN 2 WEEKS
     Route: 042
     Dates: start: 20130626
  5. BEVACIZUMAB [Suspect]
     Indication: COLON CANCER
     Dosage: 5 MG/KG,1 IN 2 WEEKS
     Route: 042
     Dates: start: 20130626, end: 20130730
  6. BEVACIZUMAB [Suspect]
     Dosage: 5 MG/KG,1 IN 2 WEEKS
     Route: 042
     Dates: start: 20130806
  7. LEUCOVORIN CALCIUM [Suspect]
     Indication: COLON CANCER
     Dosage: 200 MG, 1 IN 2 WEEKS
     Route: 042
     Dates: start: 20130626

REACTIONS (2)
  - Rectal perforation [Recovered/Resolved with Sequelae]
  - Rectal abscess [Recovered/Resolved with Sequelae]
